FAERS Safety Report 7281514-6 (Version None)
Quarter: 2011Q1

REPORT INFORMATION
  Report Type: 
  Country: None (occurrence: None)
  Receive Date: 20110208
  Receipt Date: 20110201
  Transmission Date: 20110831
  Serious: Yes (Disabling)
  Sender: FDA-Public Use
  Company Number: GB-PFIZER INC-2011002213

PATIENT
  Age: 44 Year
  Sex: Male
  Weight: 98.6 kg

DRUGS (1)
  1. CHAMPIX [Suspect]
     Indication: SMOKING CESSATION THERAPY
     Dosage: 1 MG, 2X/DAY
     Route: 048
     Dates: start: 20100215, end: 20100606

REACTIONS (8)
  - PERSONALITY CHANGE [None]
  - INSOMNIA [None]
  - AGITATION [None]
  - EMOTIONAL DISORDER [None]
  - IRRITABILITY [None]
  - DECREASED INTEREST [None]
  - ANXIETY [None]
  - AGGRESSION [None]
